FAERS Safety Report 5399324-3 (Version None)
Quarter: 2007Q3

REPORT INFORMATION
  Report Type: 
  Country: None (occurrence: None)
  Receive Date: 20070727
  Receipt Date: 20060929
  Transmission Date: 20080115
  Serious: No
  Sender: FDA-Public Use
  Company Number: US-BAUSCH-2006BL005728

PATIENT
  Age: 41 Year
  Sex: Female

DRUGS (2)
  1. TROPICAMIDE [Suspect]
     Indication: OPHTHALMOLOGICAL EXAMINATION
     Route: 047
     Dates: start: 20060821, end: 20060821
  2. TROPICAMIDE [Suspect]
     Route: 047
     Dates: start: 20060830, end: 20060830

REACTIONS (3)
  - HEADACHE [None]
  - MEDICATION ERROR [None]
  - VERTIGO [None]
